FAERS Safety Report 9742039 (Version 1)
Quarter: 2013Q4

REPORT INFORMATION
  Report Type: Spontaneous
  Country: FR (occurrence: FR)
  Receive Date: 20131210
  Receipt Date: 20131210
  Transmission Date: 20140711
  Serious: Yes (Hospitalization)
  Sender: FDA-Public Use
  Company Number: PHHY2013FR141812

PATIENT
  Age: 28 Year
  Sex: Male

DRUGS (4)
  1. AMOXICILLIN CLAVULANIC ACID SANDOZ [Suspect]
     Dosage: 12 G, QD
     Route: 042
     Dates: start: 20131107, end: 20131115
  2. LEVOFLOXACIN [Concomitant]
     Dosage: 1 G, BID
     Route: 042
     Dates: start: 20131104
  3. ALPRAZOLAM [Concomitant]
     Dosage: 0.5 DF, QD
     Route: 048
     Dates: start: 20131107
  4. TRAMADOL HYDROCHLORIDE [Concomitant]
     Dosage: 50 MG, QD
     Route: 048

REACTIONS (3)
  - Delirium [Recovered/Resolved]
  - Nightmare [Recovered/Resolved]
  - Hallucination [Recovered/Resolved]
